FAERS Safety Report 4310521-8 (Version None)
Quarter: 2004Q1

REPORT INFORMATION
  Report Type: 
  Country: None (occurrence: None)
  Receive Date: 20040303
  Receipt Date: 20030617
  Transmission Date: 20041129
  Serious: Yes (Hospitalization)
  Sender: FDA-Public Use
  Company Number: US-GLAXOSMITHKLINE-A0413826A

PATIENT
  Sex: Female

DRUGS (30)
  1. AVANDIA [Suspect]
     Indication: DIABETES MELLITUS NON-INSULIN-DEPENDENT
     Route: 048
  2. COZAAR [Concomitant]
     Dosage: 100MG PER DAY
  3. CARDURA [Concomitant]
     Dosage: 2TAB TWICE PER DAY
  4. SULAR [Concomitant]
     Dosage: 20G PER DAY
  5. LIPITOR [Concomitant]
     Dosage: 10G PER DAY
  6. ESTRADERM [Concomitant]
  7. LOPID [Concomitant]
     Dosage: 600G PER DAY
  8. DIAMOX [Concomitant]
     Dosage: 250MG TWICE PER DAY
  9. GLUCOPHAGE [Concomitant]
     Dosage: 500MG PER DAY
  10. DIFLUCAN [Concomitant]
  11. DIFLUCAN [Concomitant]
  12. IRON [Concomitant]
     Dosage: 50MG PER DAY
  13. MAVIK [Concomitant]
     Dosage: 4MG PER DAY
  14. HYDROCHLOROTHIAZIDE [Concomitant]
     Dosage: 25MG PER DAY
  15. COREG [Concomitant]
     Dosage: 12.5MG TWICE PER DAY
  16. TRICOR [Concomitant]
     Dosage: 160MG PER DAY
  17. LANTUS [Concomitant]
     Dosage: 40MG PER DAY
  18. VALIUM [Concomitant]
     Dosage: 5MG PER DAY
  19. ZETIA [Concomitant]
  20. TRIAMTERENE AND HYDROCHLOROTHIAZIDE [Concomitant]
  21. ASPIRIN [Concomitant]
     Dosage: 325MG PER DAY
  22. ISOSORBIDE [Concomitant]
     Dosage: .5TAB PER DAY
  23. DYAZIDE [Concomitant]
  24. ALTACE [Concomitant]
     Dosage: 10MG TWICE PER DAY
  25. CARDIZEM [Concomitant]
     Dosage: 300MG PER DAY
     Route: 048
  26. SURFAK [Concomitant]
  27. PLAVIX [Concomitant]
     Dosage: 75MG PER DAY
     Route: 048
  28. LISINOPRIL [Concomitant]
     Dosage: 40MG TWICE PER DAY
     Route: 048
  29. PEPCID [Concomitant]
     Dosage: 20MG PER DAY
     Route: 048
  30. ZOCOR [Concomitant]
     Dosage: 20MG AT NIGHT
     Route: 048

REACTIONS (15)
  - ANAEMIA [None]
  - ASTHMA [None]
  - CARDIAC FAILURE CONGESTIVE [None]
  - CAROTID ARTERY STENOSIS [None]
  - CORONARY ARTERY DISEASE [None]
  - FLUID OVERLOAD [None]
  - FLUID RETENTION [None]
  - HEART INJURY [None]
  - HEPATIC FAILURE [None]
  - HEPATOCELLULAR DAMAGE [None]
  - MITRAL VALVE INCOMPETENCE [None]
  - MYOCARDIAL INFARCTION [None]
  - PLEURAL EFFUSION [None]
  - RENAL FAILURE [None]
  - RENAL FAILURE ACUTE [None]
